FAERS Safety Report 9903390 (Version 2)
Quarter: 2014Q1

REPORT INFORMATION
  Report Type: Spontaneous
  Country: US (occurrence: US)
  Receive Date: 20140217
  Receipt Date: 20140217
  Transmission Date: 20141002
  Serious: No
  Sender: FDA-Public Use
  Company Number: US-GILEAD-2011-0046553

PATIENT
  Sex: Male

DRUGS (5)
  1. LETAIRIS [Suspect]
     Indication: PULMONARY HYPERTENSION
     Dosage: 10 MG, UNK
     Route: 048
     Dates: start: 20100929
  2. LETAIRIS [Suspect]
     Indication: PULMONARY FIBROSIS
  3. OXYGEN [Concomitant]
  4. TYVASO [Concomitant]
  5. REVATIO [Concomitant]
     Dosage: UNK
     Route: 048

REACTIONS (4)
  - Excessive exercise [Unknown]
  - Asthenia [Unknown]
  - Oxygen supplementation [Unknown]
  - Dyspnoea [Unknown]
